FAERS Safety Report 11748157 (Version 3)
Quarter: 2015Q4

REPORT INFORMATION
  Report Type: Spontaneous
  Country: ES (occurrence: ES)
  Receive Date: 20151117
  Receipt Date: 20151230
  Transmission Date: 20160304
  Serious: Yes (Other)
  Sender: FDA-Public Use
  Company Number: ES-GILEAD-2015-0178638

PATIENT
  Age: 44 Year
  Sex: Male

DRUGS (9)
  1. DEPAKINE                   /00228501/ [Concomitant]
     Active Substance: VALPROIC ACID
  2. LYRICA [Concomitant]
     Active Substance: PREGABALIN
  3. PSICOTRIC [Concomitant]
     Active Substance: QUETIAPINE FUMARATE
  4. RALTEGRAVIR. [Concomitant]
     Active Substance: RALTEGRAVIR
     Indication: HIV INFECTION
     Dosage: UNK
     Route: 065
     Dates: start: 2010
  5. MARAVIROC [Interacting]
     Active Substance: MARAVIROC
     Indication: HIV INFECTION
     Dosage: UNK UNKNOWN, UNK
     Route: 065
     Dates: start: 2010
  6. HARVONI [Suspect]
     Active Substance: LEDIPASVIR\SOFOSBUVIR
     Indication: HEPATITIS C
     Dosage: UNK UNKNOWN, UNK
     Route: 065
     Dates: start: 20150624, end: 201509
  7. ETRAVIRINA [Concomitant]
     Indication: HIV INFECTION
     Dosage: UNK
     Route: 065
     Dates: start: 2010
  8. TRANKIMAZIN [Concomitant]
     Active Substance: ALPRAZOLAM
  9. LORMETAZEPAM [Concomitant]
     Active Substance: LORMETAZEPAM

REACTIONS (4)
  - Transaminases increased [Recovered/Resolved]
  - Alanine aminotransferase increased [Recovered/Resolved]
  - Drug interaction [Recovered/Resolved]
  - Hepatitis acute [Recovered/Resolved]
